FAERS Safety Report 10283333 (Version 1)
Quarter: 2014Q3

REPORT INFORMATION
  Report Type: Spontaneous
  Country: US (occurrence: None)
  Receive Date: 20140702
  Receipt Date: 20140702
  Transmission Date: 20150326
  Serious: Yes (Hospitalization)
  Sender: FDA-Public Use
  Company Number: SYM-2014-22490

PATIENT
  Age: 42 Year
  Sex: Male

DRUGS (3)
  1. ANITBIOTICS (NULL) [Concomitant]
  2. CIPROFLOXACIN (CIPROFLOXACIN) [Concomitant]
     Active Substance: CIPROFLOXACIN
  3. METRONIDAZOLE (METRONIDAZOLE) [Suspect]
     Active Substance: METRONIDAZOLE
     Indication: BACTERAEMIA

REACTIONS (4)
  - Agitation [None]
  - Psychotic disorder [None]
  - Mental status changes [None]
  - Suicidal ideation [None]
